FAERS Safety Report 12224047 (Version 1)
Quarter: 2016Q1

REPORT INFORMATION
  Report Type: Spontaneous
  Country: US (occurrence: US)
  Receive Date: 20160330
  Receipt Date: 20160330
  Transmission Date: 20160526
  Serious: Yes (Death, Other)
  Sender: FDA-Public Use
  Company Number: US-TAKEDA-TPA2012A03328

PATIENT

DRUGS (5)
  1. ACTOS [Suspect]
     Active Substance: PIOGLITAZONE HYDROCHLORIDE
     Dosage: 30 MG, UNK
     Route: 048
     Dates: start: 201108
  2. GLUCOPHAGE [Concomitant]
     Active Substance: METFORMIN HYDROCHLORIDE
     Dosage: UNK
     Dates: start: 2002, end: 2010
  3. ACTOS [Suspect]
     Active Substance: PIOGLITAZONE HYDROCHLORIDE
     Indication: TYPE 2 DIABETES MELLITUS
     Dosage: 30 MG, UNK
     Route: 048
     Dates: start: 200805
  4. METFORMIN [Concomitant]
     Active Substance: METFORMIN HYDROCHLORIDE
     Dosage: UNK
     Dates: start: 2002, end: 2010
  5. GLUCOTROL [Concomitant]
     Active Substance: GLIPIZIDE
     Dosage: UNK
     Route: 065
     Dates: start: 201104

REACTIONS (3)
  - Bladder cancer recurrent [Unknown]
  - Death [Fatal]
  - Ureteric cancer [Unknown]

NARRATIVE: CASE EVENT DATE: 20101109
